FAERS Safety Report 7518771-4 (Version None)
Quarter: 2011Q2

REPORT INFORMATION
  Report Type: 
  Country: None (occurrence: None)
  Receive Date: 20110602
  Receipt Date: 20110601
  Transmission Date: 20111010
  Serious: Yes (Life-Threatening, Hospitalization, Other)
  Sender: FDA-Public Use
  Company Number: PHHY2011BR10372

PATIENT
  Sex: Female

DRUGS (6)
  1. DIOVAN [Suspect]
     Indication: HYPERTENSION
     Dosage: 1 DF, 80 MG
     Route: 048
     Dates: start: 20100101
  2. GLYBURIDE [Concomitant]
     Indication: DIABETES MELLITUS
     Dosage: 1 DF/DAY
     Route: 048
     Dates: start: 20070101
  3. AMLODIPINE BESYLATE [Concomitant]
     Dosage: 2 DF/DAY
     Route: 048
  4. ASPIRIN [Concomitant]
     Indication: BLOOD DISORDER
     Dosage: 1 DF/DAY
     Route: 048
     Dates: start: 20070101
  5. CARVEDILOL [Concomitant]
     Dosage: 1 DF
     Route: 048
  6. METFORMIN HCL [Concomitant]
     Indication: DIABETES MELLITUS
     Dosage: 2 DF, 850 MG
     Route: 048
     Dates: start: 20090101

REACTIONS (4)
  - COMA [None]
  - CARDIAC DISORDER [None]
  - BACTERAEMIA [None]
  - HYPERTENSION [None]
